FAERS Safety Report 10877213 (Version 2)
Quarter: 2015Q2

REPORT INFORMATION
  Report Type: Spontaneous
  Country: US (occurrence: US)
  Receive Date: 20150302
  Receipt Date: 20150521
  Transmission Date: 20150821
  Serious: Yes (Other)
  Sender: FDA-Public Use
  Company Number: US-BAYER-2015-027931

PATIENT
  Age: 51 Year
  Sex: Female
  Weight: 57.14 kg

DRUGS (5)
  1. LIDOCAINE. [Concomitant]
     Active Substance: LIDOCAINE
     Dosage: 2 ML, UNK
  2. MIRENA [Suspect]
     Active Substance: LEVONORGESTREL
     Indication: CONTRACEPTION
  3. TORADOL [Concomitant]
     Active Substance: KETOROLAC TROMETHAMINE
  4. MIRENA [Suspect]
     Active Substance: LEVONORGESTREL
     Indication: MENORRHAGIA
     Dosage: 20 MCG/24HR, CONT
     Route: 015
     Dates: start: 20110429, end: 20150320
  5. CYTOTEC [Concomitant]
     Active Substance: MISOPROSTOL

REACTIONS (12)
  - Genital haemorrhage [Recovered/Resolved]
  - Uterine cervix stenosis [None]
  - Procedural pain [None]
  - Abdominal pain lower [None]
  - Cystitis [None]
  - Vaginal haemorrhage [None]
  - Pollakiuria [None]
  - Device difficult to use [None]
  - Off label use of device [None]
  - Uterine leiomyoma [None]
  - Dysuria [None]
  - Device expulsion [None]

NARRATIVE: CASE EVENT DATE: 2014
